FAERS Safety Report 7418970-6 (Version None)
Quarter: 2011Q2

REPORT INFORMATION
  Report Type: 
  Country: None (occurrence: None)
  Receive Date: 20110415
  Receipt Date: 20110404
  Transmission Date: 20111010
  Serious: Yes (Hospitalization)
  Sender: FDA-Public Use
  Company Number: US-ELI_LILLY_AND_COMPANY-US201104001736

PATIENT
  Sex: Female

DRUGS (14)
  1. FERROUS SULFATE TAB [Concomitant]
  2. HYDROMORPHONE HCL [Concomitant]
  3. ZOLPIDEM [Concomitant]
  4. FORTEO [Suspect]
     Indication: OSTEOPOROSIS
     Dosage: 20 UG, QD
     Route: 065
  5. NITROGLYCERIN [Concomitant]
  6. CLONAZEPAM [Concomitant]
  7. DULOXETINE HYDROCHLORIDE [Concomitant]
  8. POTASSIUM CHLORIDE [Concomitant]
  9. PROTEINS NOS [Concomitant]
  10. MIRTAZAPINE [Concomitant]
  11. NEXIUM [Concomitant]
  12. OLANZAPINE [Concomitant]
  13. NYSTATIN [Concomitant]
  14. QUETIAPINE [Concomitant]

REACTIONS (3)
  - DECREASED APPETITE [None]
  - ASTHENIA [None]
  - MALNUTRITION [None]
